FAERS Safety Report 4655042-8 (Version None)
Quarter: 2005Q2

REPORT INFORMATION
  Report Type: 
  Country: None (occurrence: None)
  Receive Date: 20050504
  Receipt Date: 20050421
  Transmission Date: 20051028
  Serious: Yes (Hospitalization, Disabling)
  Sender: FDA-Public Use
  Company Number: 2005063708

PATIENT
  Age: 54 Year
  Sex: Female
  Weight: 90.7194 kg

DRUGS (5)
  1. CELEBREX [Suspect]
     Indication: ARTHRITIS
     Dosage: 200 MG (100 MG, 2 IN 1 D), ORAL
     Route: 048
  2. BEXTRA [Suspect]
     Indication: ARTHRITIS
     Dosage: 20 MG (10 MG, 2 IN 1 D), ORAL
     Route: 048
  3. TRAMADOL HCL [Concomitant]
  4. TOLTERODINE TARTRATE [Concomitant]
  5. PROPACET 100 [Concomitant]

REACTIONS (4)
  - ARTHROPATHY [None]
  - BONE DENSITY DECREASED [None]
  - DRUG EFFECT DECREASED [None]
  - PAIN IN EXTREMITY [None]
